FAERS Safety Report 8812053 (Version 5)
Quarter: 2013Q2

REPORT INFORMATION
  Report Type: Spontaneous
  Country: FR (occurrence: FR)
  Receive Date: 20120927
  Receipt Date: 20130611
  Transmission Date: 20140414
  Serious: Yes (Hospitalization)
  Sender: FDA-Public Use
  Company Number: FR-ACTELION-A-CH2012-71914

PATIENT
  Age: 23 Year
  Sex: Female

DRUGS (4)
  1. TRACLEER [Suspect]
     Indication: HEART DISEASE CONGENITAL
     Dosage: 125 MG, BID
     Route: 048
     Dates: end: 20120915
  2. TRACLEER [Suspect]
     Dosage: UNK
     Route: 048
     Dates: start: 2007
  3. ADCIRCA [Suspect]
     Dosage: UNK
     Dates: start: 201207
  4. ADCIRCA [Suspect]
     Dosage: UNK

REACTIONS (6)
  - Caesarean section [Unknown]
  - Premature baby [Unknown]
  - Pregnancy [Unknown]
  - Vomiting [Unknown]
  - Fatigue [Unknown]
  - Oxygen saturation decreased [Unknown]
